FAERS Safety Report 18297166 (Version 4)
Quarter: 2022Q3

REPORT INFORMATION
  Report Type: Spontaneous
  Country: CA (occurrence: CA)
  Receive Date: 20200922
  Receipt Date: 20220822
  Transmission Date: 20221026
  Serious: Yes (Other)
  Sender: FDA-Public Use
  Company Number: CA-SAMSUNG BIOEPIS-SB-2020-28944

PATIENT
  Age: 18 Year
  Sex: Male
  Weight: 126 kg

DRUGS (6)
  1. INFLIXIMAB [Suspect]
     Active Substance: INFLIXIMAB
     Indication: Crohn^s disease
     Route: 042
  2. FERROUS SULFATE [Concomitant]
     Active Substance: FERROUS SULFATE
     Indication: Product used for unknown indication
     Route: 048
  3. FOLIC ACID [Concomitant]
     Active Substance: FOLIC ACID
     Indication: Product used for unknown indication
     Dosage: UNKNOWN
     Route: 048
  4. VITAMIN D [Concomitant]
     Active Substance: VITAMIN D NOS
     Indication: Product used for unknown indication
     Route: 048
  5. ACETAMINOPHEN [Concomitant]
     Active Substance: ACETAMINOPHEN
     Indication: Premedication
     Route: 048
  6. DESOXIMETASONE [Concomitant]
     Active Substance: DESOXIMETASONE
     Indication: Product used for unknown indication
     Dosage: UNKNOWN
     Route: 065

REACTIONS (14)
  - Dehydration [Recovered/Resolved]
  - Poor venous access [Recovered/Resolved]
  - Abdominal pain [Recovered/Resolved]
  - Haematemesis [Recovered/Resolved]
  - Infectious mononucleosis [Recovered/Resolved]
  - Lymphadenopathy [Recovered/Resolved]
  - Oropharyngeal pain [Recovered/Resolved]
  - Weight decreased [Recovered/Resolved]
  - Weight increased [Recovered/Resolved]
  - Blood pressure decreased [Recovered/Resolved]
  - Therapeutic response shortened [Recovered/Resolved]
  - Intentional product use issue [Recovered/Resolved]
  - Inappropriate schedule of product administration [Recovered/Resolved]
  - Off label use [Recovered/Resolved]
